FAERS Safety Report 14010066 (Version 1)
Quarter: 2017Q3

REPORT INFORMATION
  Report Type: Spontaneous
  Country: US (occurrence: US)
  Receive Date: 20170926
  Receipt Date: 20170926
  Transmission Date: 20171128
  Serious: Yes (Other)
  Sender: FDA-Public Use
  Company Number: US-ROCHE-1986570

PATIENT
  Age: 69 Year
  Sex: Male

DRUGS (5)
  1. XELODA [Suspect]
     Active Substance: CAPECITABINE
     Dosage: 2 WEEKS ON AND ONE WEEK OFF
     Route: 048
     Dates: end: 201606
  2. AMLODIPINE [Concomitant]
     Active Substance: AMLODIPINE BESYLATE
  3. XELODA [Suspect]
     Active Substance: CAPECITABINE
     Indication: COLORECTAL CANCER
     Dosage: 2 WKS THEN 1 WK REST PERIOD, GIVEN AS 3 WK CYCLE
     Route: 048
     Dates: start: 201511
  4. XELODA [Suspect]
     Active Substance: CAPECITABINE
     Route: 048
  5. XELODA [Suspect]
     Active Substance: CAPECITABINE
     Dosage: 2 WKS THEN 1 WK REST PERIOD
     Route: 048

REACTIONS (21)
  - Peripheral swelling [Unknown]
  - Benign neoplasm [Not Recovered/Not Resolved]
  - Temperature intolerance [Recovered/Resolved]
  - Chest pain [Not Recovered/Not Resolved]
  - Pain [Not Recovered/Not Resolved]
  - Thinking abnormal [Unknown]
  - Therapy non-responder [Unknown]
  - Frustration tolerance decreased [Unknown]
  - Chemical poisoning [Unknown]
  - Pain in jaw [Unknown]
  - Nerve injury [Not Recovered/Not Resolved]
  - Paraesthesia [Not Recovered/Not Resolved]
  - Rash [Not Recovered/Not Resolved]
  - Traumatic liver injury [Not Recovered/Not Resolved]
  - Overdose [Unknown]
  - Drug intolerance [Unknown]
  - Neuropathy peripheral [Not Recovered/Not Resolved]
  - Decreased interest [Not Recovered/Not Resolved]
  - Dysgeusia [Unknown]
  - Blood creatine increased [Unknown]
  - Headache [Not Recovered/Not Resolved]

NARRATIVE: CASE EVENT DATE: 201605
